FAERS Safety Report 8810666 (Version 1)
Quarter: 2012Q4

REPORT INFORMATION
  Report Type: Spontaneous
  Country: US (occurrence: None)
  Receive Date: 20120924
  Receipt Date: 20120924
  Transmission Date: 20130627
  Serious: Yes (Disabling)
  Sender: FDA-Public Use
  Company Number: None

PATIENT
  Age: 28 Year
  Sex: Male
  Weight: 63.5 kg

DRUGS (1)
  1. PROPECIA [Suspect]
     Route: 048
     Dates: start: 20090401, end: 20120401

REACTIONS (14)
  - Premature ejaculation [None]
  - Loss of libido [None]
  - Drug ineffective [None]
  - Disturbance in sexual arousal [None]
  - Semen volume decreased [None]
  - Erectile dysfunction [None]
  - Anhedonia [None]
  - Sexual dysfunction [None]
  - Initial insomnia [None]
  - Middle insomnia [None]
  - Fatigue [None]
  - Depression [None]
  - Social avoidant behaviour [None]
  - Emotional disorder [None]
